FAERS Safety Report 4895453-9 (Version None)
Quarter: 2006Q1

REPORT INFORMATION
  Report Type: 
  Country: None (occurrence: None)
  Receive Date: 20060125
  Receipt Date: 20060110
  Transmission Date: 20060701
  Serious: Yes (Other)
  Sender: FDA-Public Use
  Company Number: 104978

PATIENT
  Age: 76 Year
  Sex: Female

DRUGS (8)
  1. DAIVONEX (CALCIPOIRIOL) [Suspect]
     Indication: PSORIASIS
     Dosage: TO
     Route: 061
     Dates: start: 20040901, end: 20040901
  2. PROPYDERM [Concomitant]
  3. COZAAR [Concomitant]
  4. ENALAPRIL ACTAVIS (ENALAPRIL) [Concomitant]
  5. BEINOVAT (BETAMETHASONE) [Concomitant]
  6. SALURES-K (SALURES-K) [Concomitant]
  7. TENORMIN [Concomitant]
  8. ALVEDON FORTE (PARACETAMOL) [Concomitant]

REACTIONS (2)
  - DYSPNOEA [None]
  - OBSTRUCTION [None]
